FAERS Safety Report 8227281-0 (Version None)
Quarter: 2012Q1

REPORT INFORMATION
  Report Type: 
  Country: None (occurrence: None)
  Receive Date: 20120322
  Receipt Date: 20120312
  Transmission Date: 20120608
  Serious: Yes (Hospitalization, Other)
  Sender: FDA-Public Use
  Company Number: PHHY2009JP36354

PATIENT
  Sex: Male

DRUGS (3)
  1. GLEEVEC [Suspect]
     Dosage: 200 MG, DAILY
     Route: 048
     Dates: start: 20090127, end: 20090302
  2. GLEEVEC [Suspect]
     Indication: CHRONIC MYELOID LEUKAEMIA
     Dosage: 400 MG, DAILY
     Route: 048
     Dates: start: 20060823, end: 20081103
  3. GLEEVEC [Suspect]
     Dosage: 300 MG, DAILY
     Route: 048
     Dates: start: 20081125, end: 20090105

REACTIONS (6)
  - THERAPEUTIC RESPONSE UNEXPECTED [None]
  - SQUAMOUS CELL CARCINOMA [None]
  - GASTROINTESTINAL HAEMORRHAGE [None]
  - NEOPLASM MALIGNANT [None]
  - NEOPLASM RECURRENCE [None]
  - NEOPLASM PROGRESSION [None]
